FAERS Safety Report 6174207-X (Version None)
Quarter: 2009Q2

REPORT INFORMATION
  Report Type: 
  Country: None (occurrence: None)
  Receive Date: 20090430
  Receipt Date: 20080328
  Transmission Date: 20091009
  Serious: No
  Sender: FDA-Public Use
  Company Number: US-ASTRAZENECA-2008UW06160

PATIENT
  Age: 51 Year
  Sex: Female
  Weight: 50.8 kg

DRUGS (11)
  1. NEXIUM [Suspect]
     Indication: HAEMATEMESIS
     Route: 048
     Dates: start: 20080327
  2. NORVASC [Concomitant]
  3. ALTACE [Concomitant]
  4. ALBUTEROL [Concomitant]
  5. SYMBICORT [Concomitant]
  6. MUCOMYST [Concomitant]
  7. VERAPAMIL [Concomitant]
  8. LASIX [Concomitant]
  9. THEOPHYLLINE [Concomitant]
  10. OXYGEN [Concomitant]
  11. CLONIDINE [Concomitant]

REACTIONS (1)
  - GASTROINTESTINAL SOUNDS ABNORMAL [None]
